FAERS Safety Report 5425853-X (Version None)
Quarter: 2007Q3

REPORT INFORMATION
  Report Type: 
  Country: None (occurrence: None)
  Receive Date: 20070823
  Receipt Date: 20070621
  Transmission Date: 20080115
  Serious: Yes (Other)
  Sender: FDA-Public Use
  Company Number: CHPA2007US07117

PATIENT
  Age: 20 Year
  Sex: Male

DRUGS (1)
  1. DEXTROMETHORPHAN, GUAIFENESIN (NCH) (DEXTROMETHORPHAN, GUAIFENESIN) UN [Suspect]
     Dosage: ORAL
     Route: 048

REACTIONS (19)
  - AGITATION [None]
  - DEPRESSED LEVEL OF CONSCIOUSNESS [None]
  - DRUG ABUSER [None]
  - DRUG INEFFECTIVE [None]
  - DRUG TOXICITY [None]
  - DRY SKIN [None]
  - FLUSHING [None]
  - GASTROINTESTINAL SOUNDS ABNORMAL [None]
  - HYPERTENSION [None]
  - HYPOTENSION [None]
  - HYPOVENTILATION [None]
  - MYDRIASIS [None]
  - MYOCLONUS [None]
  - PERIPHERAL COLDNESS [None]
  - PSYCHOMOTOR HYPERACTIVITY [None]
  - PUPILLARY LIGHT REFLEX TESTS [None]
  - TACHYCARDIA [None]
  - TREMOR [None]
  - UNRESPONSIVE TO STIMULI [None]
